FAERS Safety Report 5689812-4 (Version None)
Quarter: 2008Q1

REPORT INFORMATION
  Report Type: 
  Country: None (occurrence: None)
  Receive Date: 20080328
  Receipt Date: 20080314
  Transmission Date: 20080703
  Serious: Yes (Hospitalization)
  Sender: FDA-Public Use
  Company Number: 2008SP005924

PATIENT
  Age: 53 Year
  Sex: Male

DRUGS (9)
  1. EPTIFIBATIDE (S-P) (EPTIFIBATIDE) [Suspect]
     Indication: MYOCARDIAL INFARCTION
     Dosage: IV
     Route: 042
     Dates: start: 20070912, end: 20070912
  2. LOVENOX [Concomitant]
  3. TENORMIN [Concomitant]
  4. ATORVASTATIN CALCIUM [Concomitant]
  5. KARDEGIC [Concomitant]
  6. PLAVIX [Concomitant]
  7. WAKOBITAL [Concomitant]
  8. PREDNISOLONE [Concomitant]
  9. DECADRON [Concomitant]

REACTIONS (3)
  - HAEMATEMESIS [None]
  - THROMBOCYTOPENIA [None]
  - VARICES OESOPHAGEAL [None]
